FAERS Safety Report 9283750 (Version 2)
Quarter: 2013Q4

REPORT INFORMATION
  Report Type: Spontaneous
  Country: ES (occurrence: None)
  Receive Date: 20130506
  Receipt Date: 20131112
  Transmission Date: 20140711
  Serious: Yes (Other)
  Sender: FDA-Public Use
  Company Number: SYM-2013-03177

PATIENT
  Age: 31 Year
  Sex: Female

DRUGS (9)
  1. METRONIDAZOLE [Suspect]
     Indication: ECZEMA
     Dosage: EVERY 12 HOURS
     Dates: start: 20110928
  2. QUETIAPINE [Suspect]
     Indication: ABNORMAL BEHAVIOUR
  3. IBUPROFEN [Concomitant]
  4. OMEPRAZOLE [Concomitant]
  5. SERTRALINE [Concomitant]
  6. CLONAZEPAM [Concomitant]
  7. DIAZEPAM [Concomitant]
  8. PARACETAMOL [Concomitant]
  9. AMOXICILLIN/CLAVULANATE POTASSIUM [Concomitant]

REACTIONS (13)
  - Parkinsonism [None]
  - Drug interaction [None]
  - Sedation [None]
  - Anxiety [None]
  - Agitation [None]
  - Extrapyramidal disorder [None]
  - Pyrexia [None]
  - Vomiting [None]
  - Musculoskeletal stiffness [None]
  - Restlessness [None]
  - Screaming [None]
  - Aggression [None]
  - Drug level increased [None]
